FAERS Safety Report 6933887-9 (Version None)
Quarter: 2010Q3

REPORT INFORMATION
  Report Type: 
  Country: None (occurrence: None)
  Receive Date: 20100820
  Receipt Date: 20100811
  Transmission Date: 20110219
  Serious: Yes (Other)
  Sender: FDA-Public Use
  Company Number: US-PFIZER INC-2010090556

PATIENT
  Sex: Female

DRUGS (2)
  1. XALATAN [Suspect]
     Dosage: UNK
  2. POLYVINYL ALCOHOL [Concomitant]
     Indication: DRY EYE
     Dosage: UNK
     Dates: start: 20090101

REACTIONS (8)
  - CARPAL TUNNEL SYNDROME [None]
  - CATARACT [None]
  - DRY EYE [None]
  - EYE PAIN [None]
  - EYE PRURITUS [None]
  - FOREIGN BODY SENSATION IN EYES [None]
  - GLAUCOMA [None]
  - VISUAL ACUITY REDUCED [None]
